FAERS Safety Report 6527307-6 (Version None)
Quarter: 2010Q1

REPORT INFORMATION
  Report Type: 
  Country: None (occurrence: None)
  Receive Date: 20100105
  Receipt Date: 20090824
  Transmission Date: 20100710
  Serious: No
  Sender: FDA-Public Use
  Company Number: US-TYCO HEALTHCARE/MALLINCKRODT-T200901583

PATIENT
  Sex: Male
  Weight: 77.098 kg

DRUGS (1)
  1. OPTIMARK [Suspect]
     Indication: NUCLEAR MAGNETIC RESONANCE IMAGING BRAIN
     Dosage: 10 ML, SINGLE
     Route: 042
     Dates: start: 20090812, end: 20090812

REACTIONS (4)
  - ABDOMINAL PAIN [None]
  - HYPOAESTHESIA [None]
  - PARAESTHESIA [None]
  - PARAESTHESIA ORAL [None]
